FAERS Safety Report 11159155 (Version 1)
Quarter: 2015Q2

REPORT INFORMATION
  Report Type: Spontaneous
  Country: US (occurrence: US)
  Receive Date: 20150603
  Receipt Date: 20150603
  Transmission Date: 20150821
  Serious: No
  Sender: FDA-Public Use
  Company Number: US-SHIRE-US201504673

PATIENT
  Sex: Female
  Weight: 48.53 kg

DRUGS (10)
  1. PEXEVA [Concomitant]
     Active Substance: PAROXETINE MESYLATE
     Indication: ANXIETY
     Dosage: 10 MG, 1X/DAY:QD
     Route: 065
     Dates: end: 2014
  2. PAXIL [Concomitant]
     Active Substance: PAROXETINE HYDROCHLORIDE
     Indication: ANXIETY
     Dosage: 10 MG, 1X/DAY:QD
     Route: 065
     Dates: start: 20140905
  3. VITAMINS NOS [Concomitant]
     Active Substance: VITAMINS
     Indication: PRODUCT USED FOR UNKNOWN INDICATION
     Dosage: UNK, UNKNOWN
     Route: 065
  4. PROZAC [Concomitant]
     Active Substance: FLUOXETINE HYDROCHLORIDE
     Indication: ANXIETY
     Dosage: 20 MG, 1X/DAY:QD
     Route: 065
     Dates: start: 20150117
  5. VYVANSE [Suspect]
     Active Substance: LISDEXAMFETAMINE DIMESYLATE
     Indication: ATTENTION DEFICIT/HYPERACTIVITY DISORDER
     Dosage: 40 MG, 1X/DAY:QD
     Route: 048
  6. VYVANSE [Suspect]
     Active Substance: LISDEXAMFETAMINE DIMESYLATE
     Dosage: 70 MG, 2X/DAY:BID
     Route: 048
     Dates: start: 2013, end: 201505
  7. XANAX [Concomitant]
     Active Substance: ALPRAZOLAM
     Indication: ANXIETY
     Dosage: 1 MG, AS REQ^D
     Route: 065
  8. VYVANSE [Suspect]
     Active Substance: LISDEXAMFETAMINE DIMESYLATE
     Dosage: 70 MG, 1X/DAY:QD
     Route: 048
     Dates: start: 201305, end: 20150526
  9. VYVANSE [Suspect]
     Active Substance: LISDEXAMFETAMINE DIMESYLATE
     Dosage: 70 MG, 2X/DAY:BID
     Route: 048
     Dates: start: 20150527
  10. DAYTRANA [Suspect]
     Active Substance: METHYLPHENIDATE
     Indication: PRODUCT USED FOR UNKNOWN INDICATION
     Dosage: UNK, UNKNOWN
     Route: 065

REACTIONS (8)
  - Drug effect decreased [Not Recovered/Not Resolved]
  - Prescribed overdose [Not Recovered/Not Resolved]
  - Blood cholesterol abnormal [Unknown]
  - Anxiety [Unknown]
  - Inappropriate schedule of drug administration [Not Recovered/Not Resolved]
  - Sleep disorder [Recovered/Resolved]
  - Therapeutic response unexpected [Unknown]
  - Incorrect dose administered [Recovered/Resolved]

NARRATIVE: CASE EVENT DATE: 2013
